FAERS Safety Report 20802719 (Version 3)
Quarter: 2023Q2

REPORT INFORMATION
  Report Type: Spontaneous
  Country: AU (occurrence: AU)
  Receive Date: 20220509
  Receipt Date: 20230420
  Transmission Date: 20230721
  Serious: Yes (Death, Other)
  Sender: FDA-Public Use
  Company Number: AU-GSKCCFAPAC-Case-01483497_AE-57681

PATIENT

DRUGS (1)
  1. VENTOLIN [Suspect]
     Active Substance: ALBUTEROL SULFATE
     Indication: Asthma
     Dosage: UNK
     Dates: start: 2001

REACTIONS (9)
  - Death [Fatal]
  - Adverse drug reaction [Fatal]
  - Neoplasm malignant [Unknown]
  - Dementia [Unknown]
  - Breast cancer [Unknown]
  - Lung neoplasm malignant [Unknown]
  - Bone neoplasm [Unknown]
  - Dyspnoea [Unknown]
  - Cancer pain [Unknown]

NARRATIVE: CASE EVENT DATE: 20020101
